FAERS Safety Report 7888578-7 (Version None)
Quarter: 2011Q4

REPORT INFORMATION
  Report Type: 
  Country: None (occurrence: None)
  Receive Date: 20111103
  Receipt Date: 20111031
  Transmission Date: 20120403
  Serious: Yes (Other)
  Sender: FDA-Public Use
  Company Number: US-PFIZER INC-2011219139

PATIENT
  Sex: Male
  Weight: 95.238 kg

DRUGS (4)
  1. CELEBREX [Suspect]
     Indication: ARTHRITIS
     Dosage: 200 MG, 1X/DAY
     Route: 048
     Dates: start: 20080101, end: 20110601
  2. PLAVIX [Concomitant]
     Dosage: UNK
  3. DIOVAN [Concomitant]
     Dosage: UNK
  4. SIMVASTATIN [Concomitant]
     Dosage: UNK

REACTIONS (6)
  - DYSPHAGIA [None]
  - PAIN IN EXTREMITY [None]
  - DYSPNOEA [None]
  - BACK PAIN [None]
  - ARTHRALGIA [None]
  - LOCAL SWELLING [None]
